FAERS Safety Report 25990792 (Version 2)
Quarter: 2025Q4

REPORT INFORMATION
  Report Type: Spontaneous
  Country: US (occurrence: US)
  Receive Date: 20251103
  Receipt Date: 20251107
  Transmission Date: 20260118
  Serious: Yes (Other)
  Sender: AMARIN
  Company Number: US-Amarin Pharma  Inc-2025AMR000664

PATIENT
  Age: 58 Year
  Sex: Male

DRUGS (1)
  1. VASCEPA [Suspect]
     Active Substance: ICOSAPENT ETHYL
     Indication: Product used for unknown indication

REACTIONS (6)
  - Faecal disimpaction [Unknown]
  - Abdominal distension [Not Recovered/Not Resolved]
  - Faeces hard [Unknown]
  - Dyschezia [Unknown]
  - Constipation [Not Recovered/Not Resolved]
  - Haemorrhage [Unknown]
